FAERS Safety Report 13345090 (Version 1)
Quarter: 2017Q1

REPORT INFORMATION
  Report Type: Spontaneous
  Country: US (occurrence: US)
  Receive Date: 20170316
  Receipt Date: 20170316
  Transmission Date: 20170428
  Serious: Yes (Disabling)
  Sender: FDA-Public Use
  Company Number: None

PATIENT
  Age: 59 Year
  Sex: Male
  Weight: 55.8 kg

DRUGS (2)
  1. CIPROFLOXACIN 500 MG ORAL [Suspect]
     Active Substance: CIPROFLOXACIN
     Indication: NEPHROLITHIASIS
     Route: 048
  2. CIPROFLOXACIN 500 MG ORAL [Suspect]
     Active Substance: CIPROFLOXACIN
     Indication: INFECTION
     Route: 048

REACTIONS (7)
  - Vertigo [None]
  - Feeling abnormal [None]
  - Decreased appetite [None]
  - Headache [None]
  - Dizziness [None]
  - Withdrawal syndrome [None]
  - Fatigue [None]

NARRATIVE: CASE EVENT DATE: 20160723
